FAERS Safety Report 23342579 (Version 1)
Quarter: 2023Q4

REPORT INFORMATION
  Report Type: Spontaneous
  Country: CA (occurrence: CA)
  Receive Date: 20231227
  Receipt Date: 20231227
  Transmission Date: 20240109
  Serious: Yes (Other)
  Sender: FDA-Public Use
  Company Number: None

PATIENT
  Age: 43 Year
  Sex: Female

DRUGS (9)
  1. TACLONEX [Suspect]
     Active Substance: BETAMETHASONE DIPROPIONATE\CALCIPOTRIENE\CALCIPOTRIENE HYDRATE
     Indication: Product used for unknown indication
     Dosage: ASKED BUT UNKNOWN
  2. BETAMETHASONE VALERATE [Suspect]
     Active Substance: BETAMETHASONE VALERATE
     Indication: Product used for unknown indication
     Dosage: ASKED BUT UNKNOWN
  3. MOMETASONE FUROATE [Suspect]
     Active Substance: MOMETASONE FUROATE
     Indication: Product used for unknown indication
     Dosage: ASKED BUT UNKNOWN
  4. DAIVOBET [Suspect]
     Active Substance: BETAMETHASONE DIPROPIONATE\CALCIPOTRIENE
     Indication: Product used for unknown indication
     Dosage: ASKED BUT UNKNOWN?DOSE FORM: AEROSOL, FOAM
  5. OMNARIS [Suspect]
     Active Substance: CICLESONIDE
     Indication: Product used for unknown indication
     Dosage: DOSE FORM: SPRAY, METERED DOSE
  6. HYDROCORTISONE [Suspect]
     Active Substance: HYDROCORTISONE
     Indication: Product used for unknown indication
     Dosage: ASKED BUT UNKNOWN
  7. BETAMETHASONE DIPROPIONATE [Suspect]
     Active Substance: BETAMETHASONE DIPROPIONATE
     Indication: Product used for unknown indication
     Dosage: ASKED BUT UNKNOWN
  8. PREDNISONE [Suspect]
     Active Substance: PREDNISONE
     Indication: Topical steroid withdrawal reaction
     Dosage: ASKED BUT UNKNOWN
     Route: 048
  9. METHYLPREDNISOLONE ACEPONATE [Suspect]
     Active Substance: METHYLPREDNISOLONE ACEPONATE
     Indication: Product used for unknown indication
     Dosage: ASKED BUT UNKNOWN

REACTIONS (6)
  - Eosinophil count increased [Not Recovered/Not Resolved]
  - Dependence [Not Recovered/Not Resolved]
  - Product prescribing error [Not Recovered/Not Resolved]
  - Topical steroid withdrawal reaction [Not Recovered/Not Resolved]
  - Bedridden [Not Recovered/Not Resolved]
  - Inflammation [Not Recovered/Not Resolved]
